FAERS Safety Report 6056531-4 (Version None)
Quarter: 2009Q1

REPORT INFORMATION
  Report Type: 
  Country: None (occurrence: None)
  Receive Date: 20090129
  Receipt Date: 20090119
  Transmission Date: 20090719
  Serious: Yes (Life-Threatening)
  Sender: FDA-Public Use
  Company Number: FR-ROCHE-610646

PATIENT
  Sex: Female

DRUGS (11)
  1. VALIUM [Suspect]
     Indication: DRUG USE FOR UNKNOWN INDICATION
     Dosage: DOSE REPORTED AS:1 INTAKE
     Route: 048
     Dates: start: 20081124, end: 20081124
  2. VALIUM [Suspect]
     Route: 048
  3. LAROXYL [Suspect]
     Indication: DRUG USE FOR UNKNOWN INDICATION
     Dosage: DOSAGE:1 INTAKE
     Route: 048
     Dates: start: 20081124, end: 20081124
  4. STILNOX [Suspect]
     Indication: DRUG USE FOR UNKNOWN INDICATION
     Dosage: DOSAGE: 1 INTAKE
     Route: 048
     Dates: start: 20081124, end: 20081124
  5. TERCIAN [Suspect]
     Indication: DRUG USE FOR UNKNOWN INDICATION
     Dosage: DOSAGE: 1 INTAKE
     Route: 048
     Dates: start: 20081124, end: 20081124
  6. LAMICTAL [Suspect]
     Indication: DRUG USE FOR UNKNOWN INDICATION
     Dosage: DOSAGE:1 INTAKE
     Route: 048
     Dates: start: 20081124, end: 20081124
  7. LAMICTAL [Suspect]
     Route: 048
  8. TERALITHE [Concomitant]
  9. TERALITHE [Concomitant]
     Dates: end: 20081205
  10. THERALENE [Concomitant]
  11. NOCTRAN [Concomitant]

REACTIONS (1)
  - COMA [None]
